FAERS Safety Report 4624410-2 (Version None)
Quarter: 2005Q1

REPORT INFORMATION
  Report Type: 
  Country: None (occurrence: None)
  Receive Date: 20050107
  Receipt Date: 20040923
  Transmission Date: 20050727
  Serious: No
  Sender: FDA-Public Use
  Company Number: 234878K04USA

PATIENT
  Age: 38 Year
  Sex: Female

DRUGS (3)
  1. REBIF [Suspect]
     Indication: MULTIPLE SCLEROSIS
     Dosage: 44 MCG, 3 IN 1 WEEKS, NOT REPORTED
     Dates: start: 20031223
  2. ZOLOFT [Concomitant]
  3. CLONAZEPAM [Concomitant]

REACTIONS (8)
  - DYSTONIA [None]
  - FEELING ABNORMAL [None]
  - INJECTION SITE PAIN [None]
  - MIGRAINE [None]
  - MUSCLE SPASMS [None]
  - NERVOUSNESS [None]
  - THINKING ABNORMAL [None]
  - TREMOR [None]
